FAERS Safety Report 15850449 (Version 1)
Quarter: 2019Q1

REPORT INFORMATION
  Report Type: Spontaneous
  Country: JP (occurrence: JP)
  Receive Date: 20190121
  Receipt Date: 20190121
  Transmission Date: 20190417
  Serious: Yes (Hospitalization, Other)
  Sender: FDA-Public Use
  Company Number: JP-009507513-1901JPN001093J

PATIENT
  Sex: Male

DRUGS (3)
  1. FOSAMAC TABLETS 35MG [Suspect]
     Active Substance: ALENDRONATE SODIUM
     Indication: OSTEOPOROSIS
     Dosage: 35 MILLIGRAM, QW
     Route: 048
     Dates: end: 2018
  2. FOSAMAC TABLETS 35MG [Suspect]
     Active Substance: ALENDRONATE SODIUM
     Dosage: 35 MILLIGRAM, BID
     Route: 048
     Dates: start: 20190115, end: 20190115
  3. FOSAMAC TABLETS 35MG [Suspect]
     Active Substance: ALENDRONATE SODIUM
     Dosage: 35 MILLIGRAM, QW
     Route: 048
     Dates: start: 2018, end: 20190107

REACTIONS (3)
  - Inappropriate schedule of product administration [Unknown]
  - Cerebral infarction [Unknown]
  - Accidental overdose [Unknown]

NARRATIVE: CASE EVENT DATE: 201810
